FAERS Safety Report 19899595 (Version 2)
Quarter: 2021Q4

REPORT INFORMATION
  Report Type: Spontaneous
  Country: FR (occurrence: FR)
  Receive Date: 20210930
  Receipt Date: 20211112
  Transmission Date: 20220304
  Serious: Yes (Life-Threatening, Hospitalization, Other)
  Sender: FDA-Public Use
  Company Number: FR-MLMSERVICE-20210916-3110830-1

PATIENT
  Age: 88 Year
  Sex: Male

DRUGS (17)
  1. LANSOPRAZOLE [Suspect]
     Active Substance: LANSOPRAZOLE
     Indication: Product used for unknown indication
     Dosage: 30 MG
     Route: 048
  2. ATENOLOL [Concomitant]
     Active Substance: ATENOLOL
  3. ATENOLOL [Concomitant]
     Active Substance: ATENOLOL
  4. FUROSEMIDE [Concomitant]
     Active Substance: FUROSEMIDE
     Indication: Sodium retention
  5. FUROSEMIDE [Concomitant]
     Active Substance: FUROSEMIDE
     Indication: Fluid retention
  6. ENALAPRIL [Concomitant]
     Active Substance: ENALAPRIL
  7. ENALAPRIL [Concomitant]
     Active Substance: ENALAPRIL
  8. ALPRAZOLAM [Concomitant]
     Active Substance: ALPRAZOLAM
  9. ALPRAZOLAM [Concomitant]
     Active Substance: ALPRAZOLAM
  10. PAROXETINE [Concomitant]
     Active Substance: PAROXETINE
  11. PAROXETINE [Concomitant]
     Active Substance: PAROXETINE
  12. OXYCODONE [Concomitant]
     Active Substance: OXYCODONE
     Indication: Spinal pain
  13. OXYCODONE [Concomitant]
     Active Substance: OXYCODONE
  14. PHLOROGLUCINOL [Concomitant]
     Active Substance: PHLOROGLUCINOL
  15. PHLOROGLUCINOL [Concomitant]
     Active Substance: PHLOROGLUCINOL
  16. POLYETHYLENE GLYCOLS [Concomitant]
     Active Substance: POLYETHYLENE GLYCOLS
  17. POLYETHYLENE GLYCOLS [Concomitant]
     Active Substance: POLYETHYLENE GLYCOLS

REACTIONS (4)
  - Hypotension [Recovering/Resolving]
  - Product prescribing error [Recovering/Resolving]
  - Colitis microscopic [Recovering/Resolving]
  - Hypokalaemia [Recovering/Resolving]
